FAERS Safety Report 7952496-6 (Version None)
Quarter: 2011Q4

REPORT INFORMATION
  Report Type: 
  Country: None (occurrence: None)
  Receive Date: 20111201
  Receipt Date: 20111117
  Transmission Date: 20120403
  Serious: Yes (Death, Hospitalization)
  Sender: FDA-Public Use
  Company Number: GB-SANOFI-AVENTIS-2011SA054817

PATIENT
  Age: 92 Year
  Sex: Female
  Weight: 64 kg

DRUGS (15)
  1. CALCICHEW D3 [Concomitant]
  2. CANDESARTAN CILEXETIL [Concomitant]
  3. LATANOPROST [Concomitant]
  4. METFORMIN HCL [Concomitant]
  5. LANSOPRAZOLE [Concomitant]
  6. INADINE [Concomitant]
  7. ZINC OXIDE [Concomitant]
  8. PREDNISOLONE [Interacting]
     Dosage: REDUCING COURSE: 40 MG TO 10 MG
     Route: 065
     Dates: start: 20110517
  9. DORZOLAMIDE HYDROCHLORIDE [Concomitant]
  10. FLOXACILLIN SODIUM [Concomitant]
  11. FUROSEMIDE [Concomitant]
  12. ALENDRONIC ACID [Concomitant]
  13. ISOPROPYL MYRISTATE/PARAFFIN, LIQUID [Concomitant]
  14. CLOPIDOGREL BISULFATE [Suspect]
     Indication: ATRIAL FIBRILLATION
     Route: 065
     Dates: start: 20110505, end: 20110604
  15. CLOPIDOGREL BISULFATE [Interacting]
     Indication: CEREBROVASCULAR ACCIDENT PROPHYLAXIS
     Route: 065
     Dates: start: 20110505, end: 20110604

REACTIONS (12)
  - RECTAL HAEMORRHAGE [None]
  - SYNCOPE [None]
  - PULMONARY OEDEMA [None]
  - DUODENAL ULCER HAEMORRHAGE [None]
  - DIZZINESS [None]
  - ARTERIOSCLEROSIS [None]
  - DRUG INTERACTION [None]
  - VOMITING [None]
  - AORTIC CALCIFICATION [None]
  - PULMONARY CONGESTION [None]
  - CIRCULATORY COLLAPSE [None]
  - LEIOMYOMA [None]
